FAERS Safety Report 11384429 (Version 1)
Quarter: 2015Q3

REPORT INFORMATION
  Report Type: Spontaneous
  Country: US (occurrence: US)
  Receive Date: 20150811
  Receipt Date: 20150811
  Transmission Date: 20151125
  Serious: No
  Sender: FDA-Public Use
  Company Number: US-ELI_LILLY_AND_COMPANY-US201102000145

PATIENT
  Sex: Male

DRUGS (2)
  1. CHANTIX [Concomitant]
     Active Substance: VARENICLINE TARTRATE
     Indication: SMOKING CESSATION THERAPY
  2. CIALIS [Suspect]
     Active Substance: TADALAFIL

REACTIONS (2)
  - Drug interaction [Unknown]
  - Feeling drunk [Unknown]
